FAERS Safety Report 25613720 (Version 1)
Quarter: 2025Q3

REPORT INFORMATION
  Report Type: Spontaneous
  Country: EU (occurrence: EU)
  Receive Date: 20250728
  Receipt Date: 20250728
  Transmission Date: 20251020
  Serious: Yes (Other)
  Sender: PFIZER
  Company Number: None

PATIENT
  Age: 4 Year
  Sex: Female
  Weight: 16.8 kg

DRUGS (1)
  1. RIFABUTIN [Suspect]
     Active Substance: RIFABUTIN
     Indication: Atypical mycobacterial lymphadenitis
     Dosage: 75 MG, DAILY
     Route: 048
     Dates: start: 20250118, end: 20250418

REACTIONS (2)
  - Autoimmune thyroiditis [Not Recovered/Not Resolved]
  - Off label use [Unknown]

NARRATIVE: CASE EVENT DATE: 20250118
